FAERS Safety Report 25839515 (Version 3)
Quarter: 2025Q4

REPORT INFORMATION
  Report Type: Spontaneous
  Country: US (occurrence: US)
  Receive Date: 20250924
  Receipt Date: 20251107
  Transmission Date: 20260118
  Serious: No
  Sender: LUPIN
  Company Number: US-LUPIN PHARMACEUTICALS INC.-2025-08364

PATIENT
  Age: 76 Year
  Weight: 82.54 kg

DRUGS (1)
  1. TIOTROPIUM BROMIDE [Suspect]
     Active Substance: TIOTROPIUM BROMIDE
     Indication: Chronic obstructive pulmonary disease
     Dosage: (ONE CAPSULE TWO INHALATIONS)

REACTIONS (13)
  - Dyspnoea [Unknown]
  - Cough [Not Recovered/Not Resolved]
  - Dyspepsia [Not Recovered/Not Resolved]
  - Wrong technique in product usage process [Unknown]
  - Product substitution issue [Unknown]
  - Inappropriate schedule of product administration [Unknown]
  - Product quality issue [Unknown]
  - Wrong technique in device usage process [Unknown]
  - Drug dose omission by device [Unknown]
  - Device mechanical issue [Unknown]
  - Device malfunction [Unknown]
  - Inability to afford medication [Unknown]
  - Device issue [Unknown]
